FAERS Safety Report 24996470 (Version 1)
Quarter: 2025Q1

REPORT INFORMATION
  Report Type: Spontaneous
  Country: US (occurrence: US)
  Receive Date: 20250221
  Receipt Date: 20250221
  Transmission Date: 20250409
  Serious: No
  Sender: AUROBINDO
  Company Number: US-AUROBINDO-AUR-APL-2024-062834

PATIENT
  Age: 16 Year
  Sex: Female

DRUGS (2)
  1. ISOTRETINOIN [Suspect]
     Active Substance: ISOTRETINOIN
     Indication: Product used for unknown indication
     Dosage: ONCE A DAY
     Route: 065
     Dates: start: 20241001
  2. ISOTRETINOIN [Suspect]
     Active Substance: ISOTRETINOIN
     Indication: Product used for unknown indication
     Dosage: ONCE A DAY
     Route: 065
     Dates: start: 20241001

REACTIONS (1)
  - Product dispensing issue [Unknown]

NARRATIVE: CASE EVENT DATE: 20241208
